FAERS Safety Report 4449244-3 (Version None)
Quarter: 2004Q3

REPORT INFORMATION
  Report Type: 
  Country: None (occurrence: None)
  Receive Date: 20040910
  Receipt Date: 20040902
  Transmission Date: 20050211
  Serious: Yes (Other)
  Sender: FDA-Public Use
  Company Number: THQ2004A00819

PATIENT
  Age: 62 Year
  Sex: Male

DRUGS (4)
  1. PIOGLITAZONE HCL [Suspect]
     Indication: DIABETES MELLITUS NON-INSULIN-DEPENDENT
     Dosage: 15 MG (1 D) PER ORAL
     Route: 048
  2. METFORMIN HCL [Concomitant]
  3. MIXTARD 30/70 (HUMAN MIXTARD) [Concomitant]
  4. ASPIRIN [Concomitant]

REACTIONS (8)
  - COUGH [None]
  - DIASTOLIC DYSFUNCTION [None]
  - DYSPNOEA [None]
  - HYPERTENSION [None]
  - OEDEMA PERIPHERAL [None]
  - VENTRICULAR DYSFUNCTION [None]
  - VENTRICULAR HYPERTROPHY [None]
  - WEIGHT INCREASED [None]
